FAERS Safety Report 19788635 (Version 2)
Quarter: 2025Q2

REPORT INFORMATION
  Report Type: Spontaneous
  Country: US (occurrence: US)
  Receive Date: 20210904
  Receipt Date: 20250625
  Transmission Date: 20250717
  Serious: Yes (Life-Threatening, Hospitalization, Other)
  Sender: AUROBINDO
  Company Number: US-MLMSERVICE-20190924-1972039-1

PATIENT
  Age: 60 Year
  Sex: Male

DRUGS (2)
  1. IRINOTECAN HYDROCHLORIDE [Suspect]
     Active Substance: IRINOTECAN HYDROCHLORIDE
     Indication: Pancreatic carcinoma
     Route: 065
  2. FLUOROURACIL [Suspect]
     Active Substance: FLUOROURACIL
     Indication: Pancreatic carcinoma
     Route: 065

REACTIONS (6)
  - Pulmonary alveolar haemorrhage [Recovered/Resolved]
  - Respiratory failure [Recovered/Resolved]
  - Interstitial lung disease [Recovered/Resolved]
  - Hypersensitivity [Recovered/Resolved]
  - Pulmonary toxicity [Recovered/Resolved]
  - Cell-mediated cytotoxicity [Recovered/Resolved]
